FAERS Safety Report 7290398-1 (Version None)
Quarter: 2011Q1

REPORT INFORMATION
  Report Type: 
  Country: None (occurrence: None)
  Receive Date: 20110214
  Receipt Date: 20110209
  Transmission Date: 20110831
  Serious: Yes (Other)
  Sender: FDA-Public Use
  Company Number: CO-PFIZER INC-2011030378

PATIENT
  Age: 71 Year
  Sex: Female

DRUGS (2)
  1. TOPIRAMATE [Concomitant]
     Indication: HEADACHE
     Dosage: UNK
  2. PREGABALIN [Suspect]
     Indication: NEUROPATHY PERIPHERAL
     Dosage: UNK
     Dates: start: 20101101

REACTIONS (3)
  - DRUG INTERACTION [None]
  - ENCEPHALOPATHY [None]
  - ASTHMA [None]
